FAERS Safety Report 9959736 (Version 1)
Quarter: 2014Q1

REPORT INFORMATION
  Report Type: Report from Study
  Country: US (occurrence: US)
  Receive Date: 20140305
  Receipt Date: 20140305
  Transmission Date: 20141002
  Serious: No
  Sender: FDA-Public Use
  Company Number: US-ABBVIE-13P-163-1105933-00

PATIENT
  Age: 53 Year
  Sex: Male

DRUGS (11)
  1. HUMIRA [Suspect]
     Indication: ANKYLOSING SPONDYLITIS
  2. HYDRALAZINE [Concomitant]
     Indication: CARDIOMEGALY
  3. HYDRALAZINE [Concomitant]
     Indication: BLOOD PRESSURE
  4. CELEBREX [Concomitant]
     Indication: ARTHRALGIA
     Dosage: 200MG DAILY
  5. CELEBREX [Concomitant]
     Indication: ANKYLOSING SPONDYLITIS
  6. ALLOPURINOL [Concomitant]
     Indication: GOUT
  7. AMLODIPINE [Concomitant]
     Indication: CARDIOMYOPATHY
     Dosage: 10MG DAILY
  8. ISOSORBIDE MONONITE [Concomitant]
     Indication: CARDIOVASCULAR EVENT PROPHYLAXIS
     Dosage: 60MG DAILY
  9. CARVEDILOL [Concomitant]
     Indication: CARDIOVASCULAR EVENT PROPHYLAXIS
  10. AMITRYPTILINE [Concomitant]
     Indication: PRODUCT USED FOR UNKNOWN INDICATION
     Dosage: 50MG DAILY
  11. DOXAZOSIN [Concomitant]
     Indication: CARDIOVASCULAR EVENT PROPHYLAXIS

REACTIONS (1)
  - Arthralgia [Not Recovered/Not Resolved]
